FAERS Safety Report 4335210-5 (Version None)
Quarter: 2004Q1

REPORT INFORMATION
  Report Type: 
  Country: None (occurrence: None)
  Receive Date: 20040329
  Receipt Date: 20031209
  Transmission Date: 20041129
  Serious: No
  Sender: FDA-Public Use
  Company Number: 03P-163-0243665-00

PATIENT
  Age: 61 Year
  Sex: Female

DRUGS (6)
  1. HUMIRA [Suspect]
     Indication: RHEUMATOID ARTHRITIS
     Dosage: 40 MG, 1 IN 2 WK, SUBCUTANEOUS
     Route: 058
     Dates: start: 20031120
  2. QUINAPRIL HYDROCHLORIDE [Suspect]
     Indication: BLOOD PRESSURE INCREASED
     Dates: start: 20031121, end: 20031124
  3. METHOTREXATE [Concomitant]
  4. CELECOXIB [Concomitant]
  5. ATENOLOL [Concomitant]
  6. LORAZEPAM [Concomitant]

REACTIONS (9)
  - APHTHOUS STOMATITIS [None]
  - BLOOD PRESSURE INCREASED [None]
  - CONDITION AGGRAVATED [None]
  - COUGH [None]
  - INCREASED UPPER AIRWAY SECRETION [None]
  - INJECTION SITE ERYTHEMA [None]
  - INJECTION SITE PAIN [None]
  - RHINORRHOEA [None]
  - TOOTH DISORDER [None]
